FAERS Safety Report 4916956-4 (Version None)
Quarter: 2006Q1

REPORT INFORMATION
  Report Type: 
  Country: None (occurrence: None)
  Receive Date: 20060221
  Receipt Date: 20060210
  Transmission Date: 20060701
  Serious: Yes (Other)
  Sender: FDA-Public Use
  Company Number: US-KINGPHARMUSA00001-K200600202

PATIENT
  Age: 67 Year
  Sex: Female
  Weight: 88 kg

DRUGS (4)
  1. ALTACE [Suspect]
     Indication: HYPERTENSION
     Dosage: 10 MG, BID
     Route: 048
     Dates: start: 20040701, end: 20060209
  2. HYDROCHLOROTHIAZIDE [Suspect]
     Indication: HYPERTENSION
     Dosage: 12.5 MG, 1/2 OF 25MG, QD
     Route: 048
     Dates: end: 20060101
  3. LEVOXYL [Concomitant]
     Indication: HYPOTHYROIDISM
     Route: 048
  4. ZOCOR [Concomitant]
     Indication: BLOOD CHOLESTEROL INCREASED
     Route: 048

REACTIONS (13)
  - CHEILITIS [None]
  - GLOSSODYNIA [None]
  - HAEMORRHAGE [None]
  - HYPERKERATOSIS [None]
  - JOINT SWELLING [None]
  - LICHEN PLANUS [None]
  - LIP HAEMORRHAGE [None]
  - LIP PAIN [None]
  - LIP ULCERATION [None]
  - PRURITUS [None]
  - SCAR [None]
  - SKIN DISCOLOURATION [None]
  - SWELLING FACE [None]
